APPROVED DRUG PRODUCT: EMLA
Active Ingredient: LIDOCAINE; PRILOCAINE
Strength: 2.5%;2.5% **Federal Register determination that product was not discontinued or withdrawn for safety or effectiveness reasons**
Dosage Form/Route: CREAM;TOPICAL
Application: N019941 | Product #001
Applicant: TEVA BRANDED PHARMACEUTICAL PRODUCTS R AND D INC
Approved: Dec 30, 1992 | RLD: Yes | RS: No | Type: DISCN